FAERS Safety Report 24335514 (Version 2)
Quarter: 2024Q4

REPORT INFORMATION
  Report Type: Spontaneous
  Country: GB (occurrence: GB)
  Receive Date: 20240919
  Receipt Date: 20241028
  Transmission Date: 20250115
  Serious: Yes (Death, Other)
  Sender: NOVARTIS
  Company Number: GB-002147023-NVSC2024GB184331

PATIENT
  Age: 92 Year
  Sex: Female

DRUGS (1)
  1. ENTRESTO [Suspect]
     Active Substance: SACUBITRIL\VALSARTAN
     Indication: Cardiac failure
     Dosage: UNK (49 MG/ 51 MG TWICE DAILY)
     Route: 048
     Dates: end: 20240912

REACTIONS (3)
  - Ischaemic stroke [Fatal]
  - Cerebrovascular accident [Unknown]
  - Dysphagia [Unknown]
